FAERS Safety Report 9350764 (Version 1)
Quarter: 2013Q2

REPORT INFORMATION
  Report Type: Spontaneous
  Country: US (occurrence: US)
  Receive Date: 20130617
  Receipt Date: 20130617
  Transmission Date: 20140414
  Serious: Yes (Other)
  Sender: FDA-Public Use
  Company Number: PHEH2013US012958

PATIENT
  Sex: Female

DRUGS (2)
  1. RECLAST [Suspect]
     Dosage: UNK
     Route: 042
  2. RITUXIMAB [Concomitant]

REACTIONS (7)
  - Blood glucose decreased [Unknown]
  - Hypokinesia [Unknown]
  - Myalgia [Unknown]
  - Arthralgia [Unknown]
  - Bone pain [Unknown]
  - Fatigue [Unknown]
  - Nausea [Unknown]
